FAERS Safety Report 7660378-2 (Version None)
Quarter: 2011Q3

REPORT INFORMATION
  Report Type: 
  Country: None (occurrence: None)
  Receive Date: 20110805
  Receipt Date: 20110721
  Transmission Date: 20111222
  Serious: Yes (Other)
  Sender: FDA-Public Use
  Company Number: US-ARROW GEN-2011-11482

PATIENT
  Sex: Female

DRUGS (2)
  1. LISINOPRIL [Suspect]
     Indication: BLOOD PRESSURE
     Dosage: 20 MG, UNK
     Route: 048
  2. LISINOPRIL [Suspect]
     Dosage: 20 MG, UNK
     Route: 048
     Dates: start: 20101001

REACTIONS (7)
  - RESPIRATORY TRACT INFECTION [None]
  - SUICIDAL IDEATION [None]
  - DYSPNOEA [None]
  - LACRIMATION INCREASED [None]
  - RHINORRHOEA [None]
  - COUGH [None]
  - CHOKING SENSATION [None]
